FAERS Safety Report 17569012 (Version 6)
Quarter: 2020Q4

REPORT INFORMATION
  Report Type: Report from Study
  Country: US (occurrence: US)
  Receive Date: 20200321
  Receipt Date: 20201019
  Transmission Date: 20210113
  Serious: No
  Sender: FDA-Public Use
  Company Number: US-INCYTE CORPORATION-2020IN001634

PATIENT

DRUGS (4)
  1. JAKAFI [Suspect]
     Active Substance: RUXOLITINIB
     Dosage: 5 MILLIGRAM, BID
     Route: 048
     Dates: start: 20200902
  2. LEVOTHYROXINE. [Concomitant]
     Active Substance: LEVOTHYROXINE
     Indication: PRODUCT USED FOR UNKNOWN INDICATION
     Route: 065
  3. JAKAFI [Suspect]
     Active Substance: RUXOLITINIB
     Indication: MYELOFIBROSIS
     Dosage: 10 MILLIGRAM, BID
     Route: 048
     Dates: start: 20200224
  4. JAKAFI [Suspect]
     Active Substance: RUXOLITINIB
     Dosage: 10MG QAM AND 5MG QPM
     Route: 048
     Dates: start: 20200916

REACTIONS (7)
  - Platelet count increased [Recovering/Resolving]
  - Haemoglobin decreased [Recovered/Resolved]
  - Platelet count decreased [Not Recovered/Not Resolved]
  - Haemoglobin increased [Unknown]
  - Splenomegaly [Unknown]
  - Rash macular [Recovering/Resolving]
  - Aquagenic pruritus [Unknown]

NARRATIVE: CASE EVENT DATE: 202001
